FAERS Safety Report 7369721-5 (Version None)
Quarter: 2011Q1

REPORT INFORMATION
  Report Type: 
  Country: None (occurrence: None)
  Receive Date: 20110323
  Receipt Date: 20110210
  Transmission Date: 20110831
  Serious: Yes (Hospitalization, Other)
  Sender: FDA-Public Use
  Company Number: US-BAYER-201022966NA

PATIENT
  Sex: Female

DRUGS (6)
  1. YASMIN [Suspect]
     Indication: CONTRACEPTION
     Route: 048
     Dates: start: 20050501, end: 20071101
  2. YAZ [Suspect]
     Indication: CONTRACEPTION
     Route: 048
     Dates: start: 20050501, end: 20071101
  3. PROZAC [Concomitant]
     Indication: DEPRESSION
  4. OCELLA [Suspect]
     Indication: CONTRACEPTION
     Route: 065
     Dates: start: 20050501, end: 20071101
  5. PEPCID [Concomitant]
  6. VICODIN [Concomitant]

REACTIONS (6)
  - DYSPNOEA [None]
  - PREGNANCY ON ORAL CONTRACEPTIVE [None]
  - DIARRHOEA [None]
  - CHOLELITHIASIS [None]
  - VOMITING [None]
  - ABDOMINAL PAIN [None]
